FAERS Safety Report 12767648 (Version 1)
Quarter: 2016Q3

REPORT INFORMATION
  Report Type: Spontaneous
  Country: ES (occurrence: ES)
  Receive Date: 20160921
  Receipt Date: 20160921
  Transmission Date: 20161109
  Serious: Yes (Other)
  Sender: FDA-Public Use
  Company Number: ES-UNICHEM LABORATORIES LIMITED-UCM201609-000210

PATIENT
  Age: 35 Year
  Sex: Female

DRUGS (4)
  1. CETIRIZINE, HCL [Suspect]
     Active Substance: CETIRIZINE HYDROCHLORIDE
     Indication: CHRONIC SPONTANEOUS URTICARIA
  2. LORATADINE. [Suspect]
     Active Substance: LORATADINE
     Indication: CHRONIC SPONTANEOUS URTICARIA
  3. CYPROHEPTADINE. [Suspect]
     Active Substance: CYPROHEPTADINE
     Indication: CHRONIC SPONTANEOUS URTICARIA
  4. EBASTINE [Suspect]
     Active Substance: EBASTINE
     Indication: CHRONIC SPONTANEOUS URTICARIA

REACTIONS (3)
  - Treatment failure [Unknown]
  - Urticaria [Recovered/Resolved]
  - Type I hypersensitivity [Recovered/Resolved]
